FAERS Safety Report 24651718 (Version 2)
Quarter: 2024Q4

REPORT INFORMATION
  Report Type: Spontaneous
  Country: US (occurrence: US)
  Receive Date: 20241122
  Receipt Date: 20241122
  Transmission Date: 20250115
  Serious: Yes (Death, Other)
  Sender: ROCHE
  Company Number: US-ROCHE-10000136357

PATIENT
  Age: 77 Year
  Sex: Male

DRUGS (1)
  1. RITUXIMAB [Suspect]
     Active Substance: RITUXIMAB
     Indication: Microscopic polyangiitis
     Route: 065

REACTIONS (5)
  - Osteomyelitis [Unknown]
  - Enterobacter bacteraemia [Unknown]
  - Herpes zoster disseminated [Unknown]
  - End stage renal disease [Unknown]
  - Septic shock [Fatal]
